FAERS Safety Report 6246074-7 (Version None)
Quarter: 2009Q2

REPORT INFORMATION
  Report Type: 
  Country: None (occurrence: None)
  Receive Date: 20090626
  Receipt Date: 20090325
  Transmission Date: 20091009
  Serious: No
  Sender: FDA-Public Use
  Company Number: A0765492A

PATIENT
  Age: 63 Year
  Sex: Male
  Weight: 74.1 kg

DRUGS (3)
  1. SUMATRIPTAN SUCCINATE [Suspect]
     Route: 048
     Dates: start: 20090101, end: 20090121
  2. CYCLOSPORINE [Concomitant]
     Indication: CORNEAL TRANSPLANT
     Dates: start: 20080801
  3. OTHER MEDICATIONS [Concomitant]

REACTIONS (3)
  - DRUG INEFFECTIVE [None]
  - MIGRAINE [None]
  - PRODUCT QUALITY ISSUE [None]
